FAERS Safety Report 24000911 (Version 1)
Quarter: 2024Q2

REPORT INFORMATION
  Report Type: Spontaneous
  Country: DK (occurrence: DK)
  Receive Date: 20240621
  Receipt Date: 20240621
  Transmission Date: 20240716
  Serious: Yes (Hospitalization)
  Sender: FDA-Public Use
  Company Number: None

PATIENT

DRUGS (3)
  1. JEMPERLI [Suspect]
     Active Substance: DOSTARLIMAB-GXLY
     Indication: Endometrial cancer
     Dosage: 500 MG, Q3W
     Route: 042
     Dates: start: 20240322, end: 2024
  2. PACLITAXEL [Concomitant]
     Active Substance: PACLITAXEL
     Indication: Endometrial cancer
     Dosage: 320 MG (320 KG WITH UNKNOWN INTERVAL)
     Route: 065
     Dates: start: 20240322
  3. CARBOPLATIN [Concomitant]
     Active Substance: CARBOPLATIN
     Indication: Neoplasm malignant
     Dosage: 635 MG AT UNKNOWN INTERVAL
     Route: 065
     Dates: start: 20240322

REACTIONS (3)
  - Dermatitis allergic [Recovered/Resolved]
  - Dermatitis [Recovering/Resolving]
  - Skin toxicity [Recovered/Resolved]

NARRATIVE: CASE EVENT DATE: 20240402
